FAERS Safety Report 4633994-X (Version None)
Quarter: 2005Q2

REPORT INFORMATION
  Report Type: 
  Country: None (occurrence: None)
  Receive Date: 20050407
  Receipt Date: 20050330
  Transmission Date: 20051028
  Serious: Yes (Hospitalization)
  Sender: FDA-Public Use
  Company Number: 05P-163-0293011-00

PATIENT
  Age: 72 Year
  Sex: Male
  Weight: 102 kg

DRUGS (6)
  1. HUMIRA [Suspect]
     Indication: RHEUMATOID ARTHRITIS
     Dosage: 40 MG, 1 IN 2 WK, SUBCUTANEOUS
     Route: 058
     Dates: start: 20040101
  2. AMLODIPINE BESYLATE [Concomitant]
  3. CO-DIOVAN [Concomitant]
  4. PREDNISONE [Concomitant]
  5. METHOTREXATE SODIUM [Concomitant]
  6. FOLIC ACID [Concomitant]

REACTIONS (2)
  - ARTHRALGIA [None]
  - PULMONARY THROMBOSIS [None]
